FAERS Safety Report 20829825 (Version 1)
Quarter: 2022Q2

REPORT INFORMATION
  Report Type: Other
  Country: US (occurrence: None)
  Receive Date: 20220513
  Receipt Date: 20220513
  Transmission Date: 20220720
  Serious: Yes (Other)
  Sender: FDA-Public Use
  Company Number: US-ROCHE-3095221

PATIENT
  Sex: Male

DRUGS (1)
  1. XELODA [Suspect]
     Active Substance: CAPECITABINE
     Indication: Colorectal cancer metastatic
     Dosage: TAKE 4 TABLETS BY MOUTH TWICE A DAY FOR 14 DAYS ON, FOLLOWED BY 14 DAYS OFF FOR A 28 DAY CYCLE.
     Route: 048

REACTIONS (1)
  - Neoplasm malignant [Unknown]
